FAERS Safety Report 9767082 (Version 1)
Quarter: 2013Q4

REPORT INFORMATION
  Report Type: Spontaneous
  Country: US (occurrence: US)
  Receive Date: 20131217
  Receipt Date: 20131217
  Transmission Date: 20140711
  Serious: No
  Sender: FDA-Public Use
  Company Number: US-009507513-1312USA004259

PATIENT
  Sex: Female

DRUGS (2)
  1. COZAAR [Suspect]
     Dosage: 25 MG, UNK
     Route: 048
  2. COZAAR [Suspect]
     Dosage: 50 MG, UNK
     Route: 048

REACTIONS (1)
  - Drug ineffective [Unknown]
